FAERS Safety Report 5511736-3 (Version None)
Quarter: 2007Q4

REPORT INFORMATION
  Report Type: 
  Country: None (occurrence: None)
  Receive Date: 20071109
  Receipt Date: 20071029
  Transmission Date: 20080405
  Serious: Yes (Life-Threatening, Hospitalization, Disabling)
  Sender: FDA-Public Use
  Company Number: FR-PFIZER INC-2007069591

PATIENT
  Sex: Male
  Weight: 66 kg

DRUGS (9)
  1. LYRICA [Suspect]
     Indication: NEURALGIA
     Route: 048
  2. LYRICA [Suspect]
     Indication: ANALGESIA
     Route: 048
  3. LYRICA [Suspect]
     Route: 048
  4. DEPAKINE CHRONO [Concomitant]
     Indication: EPILEPSY
  5. BICALUTAMIDE [Concomitant]
     Indication: NEOPLASM PROSTATE
     Route: 048
  6. LEUPRORELIN [Concomitant]
     Indication: NEOPLASM PROSTATE
     Route: 058
  7. PREDNISOLONE SODIUM SULFOBENZOATE [Concomitant]
     Route: 048
  8. FENTANYL [Concomitant]
     Route: 058
  9. VALPROIC ACID [Concomitant]
     Route: 048

REACTIONS (1)
  - STATUS EPILEPTICUS [None]
